FAERS Safety Report 6063179-4 (Version None)
Quarter: 2009Q1

REPORT INFORMATION
  Report Type: 
  Country: None (occurrence: None)
  Receive Date: 20090203
  Receipt Date: 20090121
  Transmission Date: 20090719
  Serious: Yes (Other)
  Sender: FDA-Public Use
  Company Number: US-ELI_LILLY_AND_COMPANY-US200901000488

PATIENT
  Age: 61 Year
  Sex: Female

DRUGS (8)
  1. FORTEO [Suspect]
     Indication: OSTEOPOROSIS
     Dosage: 20 UG, DAILY (1/D)
     Dates: start: 20080627, end: 20081201
  2. FORTEO [Suspect]
     Dosage: 20 UG, DAILY (1/D)
     Dates: start: 20090101
  3. VITAMIN D [Concomitant]
     Dosage: 50000 U, WEEKLY (1/W)
     Dates: end: 20081201
  4. VITAMIN D [Concomitant]
     Dates: start: 20090105
  5. OSCAL D [Concomitant]
     Dosage: 600 MG, 2/D
     Dates: end: 20081201
  6. OSCAL D [Concomitant]
     Dosage: UNK, 2/D
     Dates: start: 20090105
  7. POTASSIUM CHLORIDE [Concomitant]
     Indication: MINERAL SUPPLEMENTATION
     Dosage: UNK, 3/D
     Dates: end: 20081201
  8. POTASSIUM CHLORIDE [Concomitant]
     Dosage: UNK, 3/D
     Dates: start: 20090105

REACTIONS (4)
  - BLOOD POTASSIUM INCREASED [None]
  - FEELING COLD [None]
  - HYPERCALCAEMIA [None]
  - LABORATORY TEST ABNORMAL [None]
